FAERS Safety Report 26100249 (Version 1)
Quarter: 2025Q4

REPORT INFORMATION
  Report Type: Spontaneous
  Country: CA (occurrence: CA)
  Receive Date: 20251128
  Receipt Date: 20251128
  Transmission Date: 20260118
  Serious: Yes (Other)
  Sender: TEVA
  Company Number: CA-TEVA-VS-3396254

PATIENT
  Age: 15 Year
  Sex: Female

DRUGS (2)
  1. MEDROXYPROGESTERONE [Suspect]
     Active Substance: MEDROXYPROGESTERONE
     Indication: Uterine haemorrhage
     Route: 065
  2. DIENESTROL [Suspect]
     Active Substance: DIENESTROL
     Indication: Uterine haemorrhage
     Route: 065

REACTIONS (1)
  - Disease recurrence [Unknown]
